FAERS Safety Report 8177906-3 (Version None)
Quarter: 2012Q1

REPORT INFORMATION
  Report Type: 
  Country: None (occurrence: None)
  Receive Date: 20120301
  Receipt Date: 20120222
  Transmission Date: 20120608
  Serious: No
  Sender: FDA-Public Use
  Company Number: US-PFIZER INC-2012047242

PATIENT
  Sex: Female
  Weight: 87.1 kg

DRUGS (4)
  1. NEXIUM [Suspect]
     Indication: GASTROOESOPHAGEAL REFLUX DISEASE
     Dosage: 40 MG, DAILY
  2. HYDROCODONE BITARTRATE [Suspect]
     Indication: FIBROMYALGIA
  3. LEVOTHYROXINE SODIUM [Suspect]
     Indication: THYROID DISORDER
     Dosage: 50 MG, DAILY
  4. HYDROCODONE BITARTRATE [Suspect]
     Indication: INTERVERTEBRAL DISC DEGENERATION
     Dosage: 10/325MG, 4X/DAY
     Route: 048

REACTIONS (3)
  - PANIC ATTACK [None]
  - DEPRESSION [None]
  - SLEEP DISORDER [None]
